FAERS Safety Report 4911987-2 (Version None)
Quarter: 2006Q1

REPORT INFORMATION
  Report Type: 
  Country: None (occurrence: None)
  Receive Date: 20060213
  Receipt Date: 20060130
  Transmission Date: 20060701
  Serious: Yes (Other)
  Sender: FDA-Public Use
  Company Number: 2005172607

PATIENT
  Age: 33 Year
  Sex: Female

DRUGS (5)
  1. ZELDOX (CAPSULES) (ZIPRASIDONE) [Suspect]
     Indication: PSYCHOTIC DISORDER
     Dosage: 40 MG (20 MG, 2 IN 1 D), ORAL
     Route: 048
     Dates: start: 20050801
  2. TREVILOR (VENLAFAXINE HYDROCHLORIDE) [Suspect]
     Indication: DEPRESSION
     Dosage: 75 MG, ORAL
     Route: 048
     Dates: end: 20051201
  3. TREVILOR (VENLAFAXINE HYDROCHLORIDE) [Suspect]
     Indication: PSYCHOTIC DISORDER
     Dosage: 75 MG, ORAL
     Route: 048
     Dates: end: 20051201
  4. SEROQUEL [Suspect]
     Indication: DEPRESSION
     Dosage: 75 MG (3 IN 1 D), ORAL
     Route: 048
     Dates: end: 20051201
  5. SEROQUEL [Suspect]
     Indication: PSYCHOTIC DISORDER
     Dosage: 75 MG (3 IN 1 D), ORAL
     Route: 048
     Dates: end: 20051201

REACTIONS (4)
  - ABORTION SPONTANEOUS [None]
  - BLOOD HUMAN CHORIONIC GONADOTROPIN DECREASED [None]
  - DRUG EXPOSURE DURING PREGNANCY [None]
  - PREGNANCY [None]
